FAERS Safety Report 23724268 (Version 1)
Quarter: 2024Q2

REPORT INFORMATION
  Report Type: Spontaneous
  Country: US (occurrence: US)
  Receive Date: 20240409
  Receipt Date: 20240409
  Transmission Date: 20240715
  Serious: No
  Sender: FDA-Public Use
  Company Number: US-009507513-2403USA007036

PATIENT
  Sex: Female

DRUGS (2)
  1. STROMECTOL [Suspect]
     Active Substance: IVERMECTIN
     Indication: Infection parasitic
     Dosage: 3 MG/ TWO TABLETS, ONCE
     Route: 048
     Dates: start: 20240307, end: 20240307
  2. STROMECTOL [Suspect]
     Active Substance: IVERMECTIN
     Dosage: 3 MG/ TWO TABLETS, ONCE
     Route: 048
     Dates: start: 20240315, end: 20240315

REACTIONS (2)
  - Drug ineffective [Unknown]
  - Inappropriate schedule of product administration [Unknown]

NARRATIVE: CASE EVENT DATE: 20240101
